FAERS Safety Report 25726136 (Version 1)
Quarter: 2025Q3

REPORT INFORMATION
  Report Type: Spontaneous
  Country: NP (occurrence: NP)
  Receive Date: 20250826
  Receipt Date: 20250826
  Transmission Date: 20251021
  Serious: Yes (Hospitalization, Other)
  Sender: AAVIS PHARMACEUTICALS
  Company Number: NP-AVS-000202

PATIENT
  Age: 5 Month
  Sex: Female

DRUGS (4)
  1. LEVETIRACETAM [Suspect]
     Active Substance: LEVETIRACETAM
     Indication: Seizure
     Dosage: (100 MG PER 1 ML) AT 4 MONTHS OF AGE
     Route: 048
  2. PHENYTOIN [Suspect]
     Active Substance: PHENYTOIN
     Indication: Seizure
     Dosage: 7 MONTHS OF AGE
     Route: 048
  3. LEVETIRACETAM [Suspect]
     Active Substance: LEVETIRACETAM
     Indication: Seizure
     Dosage: (1/100) AT 7 MONTHS OF AGE
     Route: 048
  4. LEVETIRACETAM [Suspect]
     Active Substance: LEVETIRACETAM
     Indication: Seizure
     Route: 048

REACTIONS (3)
  - Drug ineffective [Unknown]
  - Disease recurrence [Recovered/Resolved]
  - Seizure [Recovered/Resolved]
